FAERS Safety Report 5868754-5 (Version None)
Quarter: 2008Q3

REPORT INFORMATION
  Report Type: 
  Country: None (occurrence: None)
  Receive Date: 20080903
  Receipt Date: 20080822
  Transmission Date: 20090109
  Serious: Yes (Other)
  Sender: FDA-Public Use
  Company Number: GB-AMGEN-UK304056

PATIENT
  Age: 37 Year
  Sex: Female
  Weight: 77.9 kg

DRUGS (5)
  1. NEULASTA [Suspect]
     Indication: CHEMOTHERAPY
     Route: 058
     Dates: start: 20070921
  2. TAXOTERE [Suspect]
     Route: 042
     Dates: start: 20070819
  3. CYCLOPHOSPHAMIDE [Concomitant]
  4. EPIRUBICIN [Concomitant]
  5. FLUOROURACIL [Concomitant]

REACTIONS (6)
  - ABDOMINAL PAIN [None]
  - BACK PAIN [None]
  - DIARRHOEA [None]
  - MALAISE [None]
  - PAIN IN EXTREMITY [None]
  - STOMATITIS [None]
